FAERS Safety Report 17629220 (Version 1)
Quarter: 2020Q2

REPORT INFORMATION
  Report Type: Spontaneous
  Country: CN (occurrence: CN)
  Receive Date: 20200406
  Receipt Date: 20200406
  Transmission Date: 20200713
  Serious: Yes (Other)
  Sender: FDA-Public Use
  Company Number: CN-BAXTER-2020BAX007167

PATIENT
  Age: 70 Year
  Sex: Female
  Weight: 44.5 kg

DRUGS (8)
  1. ENDOXAN [Suspect]
     Active Substance: CYCLOPHOSPHAMIDE
     Indication: BREAST CANCER FEMALE
     Dosage: FIRST ADJUVANT EC CHEMOTHERAPY, CYCLOPHOSPHAMIDE 0.7 G + SODIUM CHLORIDE 100 ML
     Route: 041
     Dates: start: 20200206, end: 20200206
  2. 0.9% SODIUM CHLORIDE INJECTION [Suspect]
     Active Substance: SODIUM CHLORIDE
     Indication: MEDICATION DILUTION
     Dosage: FIRST ADJUVANT EC CHEMOTHERAPY, CYCLOPHOSPHAMIDE 0.7 G + SODIUM CHLORIDE 100 ML
     Route: 041
     Dates: start: 20200206, end: 20200206
  3. 0.9% SODIUM CHLORIDE INJECTION [Suspect]
     Active Substance: SODIUM CHLORIDE
     Dosage: SECOND ADJUVANT EC CHEMOTHERAPY, CYCLOPHOSPHAMIDE + SODIUM CHLORIDE
     Route: 041
  4. PHARMORUBICIN [Suspect]
     Active Substance: EPIRUBICIN
     Indication: BREAST CANCER FEMALE
     Dosage: FIRST ADJUVANT EC CHEMOTHERAPY, PHARMORUBICIN 110 MG + SODIUM CHLORIDE 150 ML
     Route: 041
     Dates: start: 20200206, end: 20200206
  5. ENDOXAN [Suspect]
     Active Substance: CYCLOPHOSPHAMIDE
     Dosage: SECOND ADJUVANT EC THERAPY, CYCLOPHOSPHAMIDE + SODIUM CHLORIDE
     Route: 041
  6. PHARMORUBICIN [Suspect]
     Active Substance: EPIRUBICIN
     Dosage: SECOND ADJUVANT EC CHEMOTHERAPY, PHARMORUBICIN + SODIUM CHLORIDE
     Route: 041
  7. SODIUM CHLORIDE. [Suspect]
     Active Substance: SODIUM CHLORIDE
     Indication: MEDICATION DILUTION
     Dosage: FIRST ADJUVANT EC CHEMOTHERAPY, PHARMORUBICIN 110 MG + SODIUM CHLORIDE 150 ML
     Route: 041
     Dates: start: 20200206, end: 20200206
  8. SODIUM CHLORIDE. [Suspect]
     Active Substance: SODIUM CHLORIDE
     Dosage: SECOND ADJUVANT EC CHEMOTHERAPY, PHARMORUBICIN + SODIUM CHLORIDE
     Route: 041

REACTIONS (1)
  - Bone marrow failure [Recovered/Resolved]

NARRATIVE: CASE EVENT DATE: 20200303
